FAERS Safety Report 15787939 (Version 2)
Quarter: 2019Q1

REPORT INFORMATION
  Report Type: Spontaneous
  Country: BR (occurrence: BR)
  Receive Date: 20190104
  Receipt Date: 20190107
  Transmission Date: 20190417
  Serious: Yes (Other)
  Sender: FDA-Public Use
  Company Number: BR-PFIZER INC-2018167357

PATIENT
  Age: 57 Year
  Sex: Male

DRUGS (4)
  1. LOSARTAN. [Concomitant]
     Active Substance: LOSARTAN
     Dosage: UNK
  2. SUTENT [Suspect]
     Active Substance: SUNITINIB MALATE
     Indication: RENAL CANCER METASTATIC
     Dosage: UNK, CYCLIC (TOOK IT FOR 28 DAYS AND PAUSED IT FOR 14 DAYS)
     Dates: start: 20180304, end: 20180415
  3. SUTENT [Suspect]
     Active Substance: SUNITINIB MALATE
     Dosage: 50 MG, CYCLIC (STARTED USING IT FOR 14 DAYS, STOPPED FOR 7 DAYS AND USED THE REST FOR 14 DAYS)
     Dates: start: 201806
  4. SUTENT [Suspect]
     Active Substance: SUNITINIB MALATE
     Dosage: USED FOR 14 DAYS, STOPPED FOR 7 DAYS, USED THE REST FOR 14 DAYS AND STOPPED FOR MORE 15 DAYS

REACTIONS (13)
  - Pain in extremity [Recovering/Resolving]
  - Genital erythema [Recovering/Resolving]
  - Burning sensation [Recovering/Resolving]
  - Arthralgia [Recovering/Resolving]
  - Skin exfoliation [Recovering/Resolving]
  - Ageusia [Recovering/Resolving]
  - Paronychia [Recovering/Resolving]
  - Diarrhoea [Recovering/Resolving]
  - Gastrointestinal carcinoma [Unknown]
  - Second primary malignancy [Unknown]
  - Decreased appetite [Recovering/Resolving]
  - Nausea [Recovering/Resolving]
  - Scab [Recovering/Resolving]
